FAERS Safety Report 7630609-3 (Version None)
Quarter: 2011Q3

REPORT INFORMATION
  Report Type: 
  Country: None (occurrence: None)
  Receive Date: 20110722
  Receipt Date: 20110718
  Transmission Date: 20111222
  Serious: Yes (Hospitalization, Other)
  Sender: FDA-Public Use
  Company Number: US-ELI_LILLY_AND_COMPANY-US201008003308

PATIENT
  Sex: Male

DRUGS (23)
  1. SYNTHROID [Concomitant]
     Dosage: 75 UG, QD
  2. ALBUTEROL SULFATE AUTOHALER [Concomitant]
     Dosage: 1 DF, PRN
  3. FUROSEMIDE [Concomitant]
     Dosage: 80 MG, BID
  4. BYETTA [Suspect]
     Indication: TYPE 2 DIABETES MELLITUS
     Dosage: 5 UG, BID
     Dates: start: 20080724
  5. ATENOLOL [Concomitant]
     Dosage: 100 MG, BID
  6. SYNTHROID [Concomitant]
     Dosage: 175 UG, QD
  7. OXYCONTIN [Concomitant]
     Dosage: 20 MG, BID
  8. JANUVIA [Concomitant]
     Dosage: 100 MG, QD
  9. SPIRONOLACTONE [Concomitant]
     Dosage: 50 MG, QD
  10. PLETAL [Concomitant]
     Dosage: 50 MG, BID
  11. SINGULAIR [Concomitant]
     Dosage: 10 MG, QD
  12. ADVAIR DISKUS 100/50 [Concomitant]
     Dosage: 1 DF, QD
  13. MICARDIS HCT [Concomitant]
     Dosage: 1 DF, QD
  14. AMLODIPINE BESYLATE [Concomitant]
     Dosage: 10 MG, QD
  15. PLAVIX [Concomitant]
     Dosage: 75 MG, QD
  16. VYTORIN [Concomitant]
     Dosage: 1 DF, QD
  17. GLYBURIDE [Concomitant]
     Dosage: 5 MG, QD
  18. LORATADINE [Concomitant]
     Dosage: 10 MG, QD
  19. LANTUS [Concomitant]
     Dosage: 40 U, QD
  20. MAGNESIUM OXIDE [Concomitant]
     Dosage: 400 MG, BID
  21. ASPIRIN [Concomitant]
     Dosage: 81 MG, QD
  22. AMBIEN CR [Concomitant]
     Dosage: 12.5 MG, EACH EVENING
  23. UROXATRAL [Concomitant]
     Dosage: 10 MG, QD

REACTIONS (4)
  - RENAL FAILURE CHRONIC [None]
  - RENAL FAILURE [None]
  - BLOOD CREATININE INCREASED [None]
  - OFF LABEL USE [None]
